FAERS Safety Report 9336393 (Version 1)
Quarter: 2013Q2

REPORT INFORMATION
  Report Type: Spontaneous
  Country: JP (occurrence: JP)
  Receive Date: 20130607
  Receipt Date: 20130607
  Transmission Date: 20140414
  Serious: Yes (Hospitalization)
  Sender: FDA-Public Use
  Company Number: JP-BAYER-2013-058009

PATIENT
  Age: 73 Year
  Sex: Male

DRUGS (18)
  1. NEXAVAR [Suspect]
     Indication: HEPATOCELLULAR CARCINOMA
     Dosage: 200 MG, BID
     Route: 048
     Dates: start: 20130325, end: 20130507
  2. HERBESSER R [Concomitant]
     Dosage: 100 MG, OM
     Route: 048
  3. DIGOXIN [Concomitant]
     Dosage: 0.25 MG, OM
     Route: 048
  4. WARFARIN [Concomitant]
     Dosage: 2 MG, OM
     Route: 048
     Dates: end: 20130507
  5. BUFFERIN A [Concomitant]
     Dosage: 81 MG, OM
     Route: 048
  6. LASIX [Concomitant]
     Dosage: DAILY DOSE 100 MG
     Route: 048
  7. KETAS [Concomitant]
     Dosage: 10 MG, TID
     Route: 048
  8. PARIET [Concomitant]
     Dosage: 10 MG, BID
     Route: 048
  9. ALDACTONE A [Concomitant]
     Dosage: 25 MG, QD
     Route: 048
  10. SENNOSIDE [Concomitant]
     Dosage: 24 MG, HS
     Route: 048
  11. DEPAS [Concomitant]
     Dosage: 0.5 MG, HS
     Route: 048
  12. LENDORMIN DAINIPPO [Concomitant]
     Dosage: 0.25 MG, HS
     Route: 048
  13. NERISONA [Concomitant]
     Indication: PRURITUS
     Dosage: UNK
     Route: 061
  14. BLOPRESS [Concomitant]
     Dosage: 4 MG, OM
     Route: 048
  15. HYALEIN [Concomitant]
     Dosage: UNK
     Route: 047
  16. KARY UNI [Concomitant]
     Dosage: UNK
     Route: 047
  17. NOVORAPID [Concomitant]
     Dosage: 14 U, BID
  18. NOVORAPID [Concomitant]
     Dosage: 14 U, QD

REACTIONS (3)
  - Tumour lysis syndrome [Recovering/Resolving]
  - Tumour haemorrhage [Recovering/Resolving]
  - Pyrexia [Recovering/Resolving]
